FAERS Safety Report 5561379-0 (Version None)
Quarter: 2007Q4

REPORT INFORMATION
  Report Type: 
  Country: None (occurrence: None)
  Receive Date: 20071215
  Receipt Date: 20071023
  Transmission Date: 20080405
  Serious: No
  Sender: FDA-Public Use
  Company Number: US-AMGEN-KDL240187

PATIENT
  Sex: Female
  Weight: 99 kg

DRUGS (12)
  1. ARANESP [Suspect]
     Indication: RENAL FAILURE CHRONIC
     Route: 058
     Dates: start: 20070814
  2. GLYBURIDE [Concomitant]
  3. SYNTHROID [Concomitant]
  4. SYNTHROID [Concomitant]
  5. ZOCOR [Concomitant]
  6. LASIX [Concomitant]
  7. PRINIVIL [Concomitant]
  8. DETROL [Concomitant]
  9. STARLIX [Concomitant]
  10. K-DUR 10 [Concomitant]
  11. MIRALAX [Concomitant]
  12. CITRUCEL [Concomitant]

REACTIONS (3)
  - FEELING HOT [None]
  - HYPERHIDROSIS [None]
  - VOMITING [None]
